FAERS Safety Report 22977632 (Version 3)
Quarter: 2024Q1

REPORT INFORMATION
  Report Type: Spontaneous
  Country: US (occurrence: US)
  Receive Date: 20230925
  Receipt Date: 20240103
  Transmission Date: 20240410
  Serious: Yes (Other)
  Sender: FDA-Public Use
  Company Number: US-PFIZER INC-PV202300157707

PATIENT
  Age: 52 Year
  Sex: Male

DRUGS (1)
  1. GENOTROPIN [Suspect]
     Active Substance: SOMATROPIN
     Dosage: 0.8 MG, DAILY

REACTIONS (6)
  - Deafness [Unknown]
  - Polyglandular disorder [Unknown]
  - Fatigue [Unknown]
  - Amnesia [Unknown]
  - Tremor [Unknown]
  - Insomnia [Unknown]
